FAERS Safety Report 22347943 (Version 1)
Quarter: 2023Q2

REPORT INFORMATION
  Report Type: Spontaneous
  Country: NL (occurrence: NL)
  Receive Date: 20230522
  Receipt Date: 20230522
  Transmission Date: 20230722
  Serious: Yes (Other)
  Sender: FDA-Public Use
  Company Number: None

PATIENT
  Sex: Male
  Weight: 85 kg

DRUGS (2)
  1. ENBREL [Suspect]
     Active Substance: ETANERCEPT
     Indication: Psoriatic arthropathy
     Dosage: 25 MILLIGRAM, QWK
     Route: 065
     Dates: start: 20220321, end: 20220414
  2. NAPROXEN [Concomitant]
     Active Substance: NAPROXEN
     Dosage: TABLET, 500 MG (MILLIGRAM)

REACTIONS (3)
  - Sudden hearing loss [Unknown]
  - Antineutrophil cytoplasmic antibody positive [Unknown]
  - Tinnitus [Unknown]
